FAERS Safety Report 20329660 (Version 1)
Quarter: 2022Q1

REPORT INFORMATION
  Report Type: Spontaneous
  Country: US (occurrence: US)
  Receive Date: 20220112
  Receipt Date: 20220112
  Transmission Date: 20220423
  Serious: No
  Sender: FDA-Public Use
  Company Number: US-JNJFOC-20220108842

PATIENT
  Age: 58 Year
  Sex: Female

DRUGS (1)
  1. IMODIUM [Suspect]
     Active Substance: LOPERAMIDE HYDROCHLORIDE
     Indication: Gastric disorder
     Dosage: 1 PILL ONE PER DOSE
     Route: 048
     Dates: start: 20220104

REACTIONS (6)
  - Product physical issue [Unknown]
  - Burning sensation [Unknown]
  - Taste disorder [Unknown]
  - Oropharyngeal pain [Unknown]
  - Pharyngitis [Unknown]
  - Cough [Unknown]

NARRATIVE: CASE EVENT DATE: 20220104
